FAERS Safety Report 7462028-7 (Version None)
Quarter: 2011Q2

REPORT INFORMATION
  Report Type: 
  Country: None (occurrence: None)
  Receive Date: 20110506
  Receipt Date: 20081017
  Transmission Date: 20111010
  Serious: Yes (Other)
  Sender: FDA-Public Use
  Company Number: US-BAYER-200836319NA

PATIENT
  Age: 72 Year
  Sex: Male
  Weight: 81.633 kg

DRUGS (14)
  1. LISINOPRIL [Concomitant]
     Dosage: 20 MG, BID
     Route: 048
  2. INSULIN [Concomitant]
     Dosage: 8 UNITS
  3. INSULIN [Concomitant]
     Dosage: UNK
     Route: 042
     Dates: start: 20050928
  4. HEPARIN [Concomitant]
     Dosage: UNK
     Route: 042
     Dates: start: 20050928
  5. TRASYLOL [Suspect]
     Indication: CORONARY ARTERY BYPASS
     Dosage: 200 ML FOLLOWED BY 50 ML PER HOUR
     Route: 042
     Dates: start: 20050928, end: 20050928
  6. ACETYLSALICYLIC ACID SRT [Concomitant]
     Dosage: 325 MG, QD
     Route: 048
  7. INSULIN [Concomitant]
     Dosage: 24 U, UNK
     Route: 058
  8. ANCEF [Concomitant]
     Dosage: UNK
     Route: 042
     Dates: start: 20050928
  9. NITROGLYCERIN [Concomitant]
     Route: 060
  10. SIMVASTATIN [Concomitant]
     Dosage: 40 MG, UNK
     Route: 048
  11. LASIX [Concomitant]
     Dosage: 40 MG, QD
     Route: 048
  12. TIAZAC [Concomitant]
     Dosage: 240 MG, QD
     Route: 048
  13. VERSED [Concomitant]
     Dosage: UNK
     Route: 042
     Dates: start: 20050928
  14. PAPAVERINE [Concomitant]
     Dosage: UNK
     Route: 042
     Dates: start: 20050928

REACTIONS (10)
  - RENAL INJURY [None]
  - EMOTIONAL DISTRESS [None]
  - RENAL FAILURE [None]
  - STRESS [None]
  - RENAL IMPAIRMENT [None]
  - ANXIETY [None]
  - PAIN [None]
  - UNEVALUABLE EVENT [None]
  - COLLAPSE OF LUNG [None]
  - FEAR [None]
